FAERS Safety Report 7268120-4 (Version None)
Quarter: 2011Q1

REPORT INFORMATION
  Report Type: 
  Country: None (occurrence: None)
  Receive Date: 20110201
  Receipt Date: 20110128
  Transmission Date: 20110831
  Serious: No
  Sender: FDA-Public Use
  Company Number: US-PFIZER INC-2011020882

PATIENT
  Sex: Female
  Weight: 63 kg

DRUGS (3)
  1. TIKOSYN [Suspect]
     Indication: ATRIAL FLUTTER
     Dosage: 0.5 MG, 2X/DAY
     Route: 048
     Dates: start: 20090401
  2. VITAMIN B-12 [Suspect]
     Dosage: UNK, DAILY
     Route: 048
  3. TIKOSYN [Suspect]
     Indication: ATRIAL FIBRILLATION

REACTIONS (1)
  - X-RAY ABNORMAL [None]
